FAERS Safety Report 6960396-3 (Version None)
Quarter: 2010Q3

REPORT INFORMATION
  Report Type: 
  Country: None (occurrence: None)
  Receive Date: 20100901
  Receipt Date: 20100826
  Transmission Date: 20110219
  Serious: No
  Sender: FDA-Public Use
  Company Number: US-TEVA-246592USA

PATIENT
  Sex: Male

DRUGS (1)
  1. COPAXONE [Suspect]
     Indication: MULTIPLE SCLEROSIS
     Route: 058

REACTIONS (5)
  - DEFAECATION URGENCY [None]
  - FEELING ABNORMAL [None]
  - IMMEDIATE POST-INJECTION REACTION [None]
  - NAUSEA [None]
  - VOMITING [None]
